FAERS Safety Report 8784303 (Version 1)
Quarter: 2012Q4

REPORT INFORMATION
  Report Type: 
  Country: US (occurrence: US)
  Receive Date: 20120913
  Receipt Date: 20120913
  Transmission Date: 20130627
  Serious: No
  Sender: FDA-Public Use
  Company Number: US-PFIZER INC-2012225074

PATIENT
  Age: 92 Year
  Sex: Male
  Weight: 54.42 kg

DRUGS (4)
  1. ADVIL [Suspect]
     Indication: BACK DISORDER
     Dosage: 200 mg, once
     Route: 048
     Dates: start: 20120910, end: 20120910
  2. TYLENOL [Suspect]
     Indication: BACK DISORDER
     Dosage: 1000 mg, (2 tablets of 500 mg), 3x/day
  3. GLUCOSAMINE [Concomitant]
     Indication: BONE DISORDER
     Dosage: UNK, daily
  4. LOMOTIL [Concomitant]
     Indication: DIARRHOEA
     Dosage: UNK, 2x/day

REACTIONS (2)
  - Drug ineffective [Unknown]
  - Flushing [Recovered/Resolved]
